FAERS Safety Report 12260060 (Version 1)
Quarter: 2016Q2

REPORT INFORMATION
  Report Type: Spontaneous
  Country: US (occurrence: US)
  Receive Date: 20160412
  Receipt Date: 20160412
  Transmission Date: 20160815
  Serious: No
  Sender: FDA-Public Use
  Company Number: US-SA-2015SA142051

PATIENT
  Age: 26 Year
  Sex: Female

DRUGS (1)
  1. ALLEGRA ALLERGY [Suspect]
     Active Substance: FEXOFENADINE HYDROCHLORIDE
     Indication: HYPERSENSITIVITY
     Dosage: START FROM: 2 WEEKS AGO
     Route: 048

REACTIONS (5)
  - Sneezing [Unknown]
  - Throat irritation [Unknown]
  - Fatigue [Unknown]
  - Therapeutic response decreased [Unknown]
  - Lacrimation increased [Unknown]
